FAERS Safety Report 7229712-1 (Version None)
Quarter: 2011Q1

REPORT INFORMATION
  Report Type: 
  Country: None (occurrence: None)
  Receive Date: 20110117
  Receipt Date: 20101221
  Transmission Date: 20110831
  Serious: Yes (Death, Hospitalization, Other)
  Sender: FDA-Public Use
  Company Number: BR-ABBOTT-10P-020-0693142-00

PATIENT
  Sex: Male
  Weight: 85 kg

DRUGS (6)
  1. HUMIRA [Suspect]
     Indication: CROHN'S DISEASE
     Dosage: 160 MG LOADING DOSE
     Route: 058
     Dates: start: 20100713, end: 20100713
  2. POYDORME [Concomitant]
     Indication: SLEEP DISORDER THERAPY
     Route: 048
  3. HUMIRA [Suspect]
     Dosage: 80 MG LOADING DOSE
     Route: 058
  4. HUMIRA [Suspect]
     Route: 058
     Dates: end: 20101001
  5. SERTRALINE [Concomitant]
     Indication: PRODUCT USED FOR UNKNOWN INDICATION
     Route: 048
  6. CLONAZEPAM [Concomitant]
     Indication: SLEEP DISORDER THERAPY
     Route: 048

REACTIONS (16)
  - SEPTIC SHOCK [None]
  - INTESTINAL OBSTRUCTION [None]
  - FISTULA [None]
  - IMMUNE SYSTEM DISORDER [None]
  - DYSPNOEA [None]
  - CONSTIPATION [None]
  - ABDOMINAL PAIN [None]
  - ABDOMINAL RIGIDITY [None]
  - MALNUTRITION [None]
  - BACTERAEMIA [None]
  - HYPOPHAGIA [None]
  - CROHN'S DISEASE [None]
  - ASTHENIA [None]
  - DRUG INEFFECTIVE [None]
  - ANAL ABSCESS [None]
  - COUGH [None]
